FAERS Safety Report 4610062-4 (Version None)
Quarter: 2005Q1

REPORT INFORMATION
  Report Type: 
  Country: None (occurrence: None)
  Receive Date: 20050315
  Receipt Date: 20050228
  Transmission Date: 20050727
  Serious: Yes (Death, Congenital Anomaly)
  Sender: FDA-Public Use
  Company Number: 2004AP00085

PATIENT
  Sex: Male
  Weight: 1.12 kg

DRUGS (3)
  1. AMIAS [Suspect]
  2. ALBUTEROL [Suspect]
  3. BECLOMETHASONE AQUEOUS [Suspect]

REACTIONS (16)
  - ANURIA [None]
  - CONGENITAL BLADDER ANOMALY [None]
  - CONGENITAL FOOT MALFORMATION [None]
  - DRUG EXPOSURE DURING PREGNANCY [None]
  - FOETAL GROWTH RETARDATION [None]
  - FOETAL HEART RATE ABNORMAL [None]
  - HYPOSPADIAS [None]
  - JOINT CONTRACTURE [None]
  - KIDNEY ENLARGEMENT [None]
  - MULTIPLE CONGENITAL ABNORMALITIES [None]
  - NEONATAL HYPOTENSION [None]
  - PREMATURE BABY [None]
  - PULMONARY CONGESTION [None]
  - RENAL AGENESIS [None]
  - SKULL MALFORMATION [None]
  - THERAPY NON-RESPONDER [None]
